FAERS Safety Report 5812561-6 (Version None)
Quarter: 2008Q3

REPORT INFORMATION
  Report Type: 
  Country: None (occurrence: None)
  Receive Date: 20080717
  Receipt Date: 20080711
  Transmission Date: 20090109
  Serious: Yes (Hospitalization)
  Sender: FDA-Public Use
  Company Number: US-ASTRAZENECA-2008UW13891

PATIENT
  Age: 73 Year
  Sex: Male
  Weight: 86.2 kg

DRUGS (10)
  1. SYMBICORT [Suspect]
     Indication: ASTHMA
     Dosage: 150/4.5 UG - 2 PUFF BID
     Route: 055
     Dates: start: 20080201
  2. LIPITOR [Concomitant]
  3. TRIAMTERENE AND HYDROCHLOROTHIAZIDE [Concomitant]
  4. PLAVIX [Concomitant]
  5. FOLIC ACID [Concomitant]
  6. ZETIA [Concomitant]
  7. LISINOPRIL [Concomitant]
     Route: 048
  8. ASPIRIN [Concomitant]
  9. FLOMAX [Concomitant]
  10. ASCORBIC ACID [Concomitant]

REACTIONS (3)
  - BLOOD PRESSURE DECREASED [None]
  - CHEST PAIN [None]
  - MUSCLE SPASMS [None]
